FAERS Safety Report 12545690 (Version 1)
Quarter: 2016Q3

REPORT INFORMATION
  Report Type: Spontaneous
  Country: JP (occurrence: JP)
  Receive Date: 20160711
  Receipt Date: 20160711
  Transmission Date: 20161109
  Serious: Yes (Other)
  Sender: FDA-Public Use
  Company Number: JP-PFIZER INC-2016332840

PATIENT
  Age: 35 Year
  Sex: Male

DRUGS (3)
  1. TIZANIDINE /00740702/ [Suspect]
     Active Substance: TIZANIDINE HYDROCHLORIDE
     Dosage: 3 MG, UNK
     Route: 048
  2. ETIZOLAM [Suspect]
     Active Substance: ETIZOLAM
     Dosage: 3 MG, UNK
     Route: 048
  3. ALPRAZOLAM. [Suspect]
     Active Substance: ALPRAZOLAM
     Dosage: 0.8 MG, UNK
     Route: 048

REACTIONS (11)
  - Withdrawal syndrome [Unknown]
  - Stress [None]
  - Hyperhidrosis [None]
  - Dyspnoea [None]
  - Altered state of consciousness [Unknown]
  - Ataxia [Unknown]
  - Dysarthria [None]
  - Insomnia [None]
  - Panic reaction [None]
  - Malaise [None]
  - Myofascial pain syndrome [Unknown]
